FAERS Safety Report 16649053 (Version 1)
Quarter: 2019Q3

REPORT INFORMATION
  Report Type: Spontaneous
  Country: TR (occurrence: TR)
  Receive Date: 20190730
  Receipt Date: 20190730
  Transmission Date: 20191004
  Serious: Yes (Other)
  Sender: FDA-Public Use
  Company Number: PHHY2019TR172433

PATIENT
  Age: 29 Year
  Sex: Male

DRUGS (1)
  1. SECUKINUMAB. [Suspect]
     Active Substance: SECUKINUMAB
     Indication: ANKYLOSING SPONDYLITIS
     Dosage: 150 MG, QW (3 LOADING DOSES)
     Route: 065

REACTIONS (7)
  - Behcet^s syndrome [Unknown]
  - Mouth ulceration [Unknown]
  - Thrombophlebitis superficial [Unknown]
  - Pyrexia [Unknown]
  - Acute phase reaction [Not Recovered/Not Resolved]
  - Genital ulceration [Unknown]
  - Uveitis [Unknown]
